FAERS Safety Report 8290481-8 (Version None)
Quarter: 2012Q2

REPORT INFORMATION
  Report Type: 
  Country: None (occurrence: None)
  Receive Date: 20120417
  Receipt Date: 20120103
  Transmission Date: 20120825
  Serious: No
  Sender: FDA-Public Use
  Company Number: US-ASTRAZENECA-2011SE73183

PATIENT
  Age: 56 Year
  Sex: Female

DRUGS (16)
  1. MIDAZOLAM [Concomitant]
  2. IBUPROFEN [Concomitant]
  3. COLESTID [Concomitant]
  4. BENTYL [Concomitant]
     Indication: DIARRHOEA
  5. IMODIUM [Concomitant]
  6. MEPERIDINE HCL [Concomitant]
  7. CARAFATE [Concomitant]
  8. FENTANYL [Concomitant]
  9. FLAGYL [Concomitant]
  10. PHENERGAN HCL [Concomitant]
  11. NEXIUM [Suspect]
     Route: 048
  12. NEXIUM [Suspect]
     Route: 048
  13. ANTACIDS [Concomitant]
  14. BENTYL [Concomitant]
     Indication: IRRITABLE BOWEL SYNDROME
  15. BENTYL [Concomitant]
     Indication: MUSCLE SPASMS
  16. REGLAN [Concomitant]

REACTIONS (17)
  - BURNING SENSATION [None]
  - DIVERTICULUM [None]
  - ABDOMINAL PAIN UPPER [None]
  - ABDOMINAL PAIN [None]
  - GASTROOESOPHAGEAL REFLUX DISEASE [None]
  - DIARRHOEA [None]
  - NAUSEA [None]
  - HAEMORRHOIDS [None]
  - BOWEL MOVEMENT IRREGULARITY [None]
  - HIATUS HERNIA [None]
  - CHEST PAIN [None]
  - IRRITABLE BOWEL SYNDROME [None]
  - ABDOMINAL PAIN LOWER [None]
  - BARRETT'S OESOPHAGUS [None]
  - HELICOBACTER INFECTION [None]
  - COLONIC POLYP [None]
  - GASTRITIS [None]
